FAERS Safety Report 15990940 (Version 1)
Quarter: 2019Q1

REPORT INFORMATION
  Report Type: Spontaneous
  Country: US (occurrence: US)
  Receive Date: 20190125
  Receipt Date: 20190125
  Transmission Date: 20190418
  Serious: No
  Sender: FDA-Public Use
  Company Number: None

PATIENT
  Age: 73 Year
  Sex: Female

DRUGS (4)
  1. CAPECITABINE TAB 500MG [Suspect]
     Active Substance: CAPECITABINE
     Indication: COLON CANCER
     Route: 048
     Dates: start: 20181220, end: 20190108
  2. ATENOLOL. [Concomitant]
     Active Substance: ATENOLOL
  3. WELLBUTRIN [Concomitant]
     Active Substance: BUPROPION HYDROCHLORIDE
  4. TRAZODONE [Concomitant]
     Active Substance: TRAZODONE HYDROCHLORIDE

REACTIONS (4)
  - Peripheral swelling [None]
  - Rash [None]
  - Diarrhoea [None]
  - Skin exfoliation [None]

NARRATIVE: CASE EVENT DATE: 20190102
